FAERS Safety Report 7427624-1 (Version None)
Quarter: 2011Q2

REPORT INFORMATION
  Report Type: 
  Country: None (occurrence: None)
  Receive Date: 20110421
  Receipt Date: 20110411
  Transmission Date: 20111010
  Serious: Yes (Life-Threatening, Hospitalization, Other)
  Sender: FDA-Public Use
  Company Number: US-MYLANLABS-2011S1006144

PATIENT
  Age: 22 Year
  Sex: Female
  Weight: 76.2 kg

DRUGS (3)
  1. DEPAKOTE [Concomitant]
     Indication: DEPRESSED MOOD
     Dates: start: 20010101, end: 20090101
  2. TOPIRAMATE [Concomitant]
     Indication: DEPRESSED MOOD
     Dates: start: 20090422
  3. CLOZAPINE [Suspect]
     Indication: SCHIZOPHRENIA
     Route: 048
     Dates: start: 20010101

REACTIONS (1)
  - ACUTE MYELOID LEUKAEMIA [None]
